FAERS Safety Report 7602991-4 (Version None)
Quarter: 2011Q3

REPORT INFORMATION
  Report Type: 
  Country: None (occurrence: None)
  Receive Date: 20110712
  Receipt Date: 20110603
  Transmission Date: 20111222
  Serious: No
  Sender: FDA-Public Use
  Company Number: A0930945A

PATIENT
  Sex: Male

DRUGS (1)
  1. JALYN [Suspect]
     Route: 048

REACTIONS (1)
  - HIGH DENSITY LIPOPROTEIN INCREASED [None]
